FAERS Safety Report 5298175-8 (Version None)
Quarter: 2007Q2

REPORT INFORMATION
  Report Type: 
  Country: None (occurrence: None)
  Receive Date: 20070416
  Receipt Date: 20070402
  Transmission Date: 20071010
  Serious: Yes (Hospitalization)
  Sender: FDA-Public Use
  Company Number: US-SHR-US-2007-005417

PATIENT
  Age: 65 Year
  Sex: Female
  Weight: 43.084 kg

DRUGS (3)
  1. BETASERON [Suspect]
     Indication: RELAPSING-REMITTING MULTIPLE SCLEROSIS
     Dosage: 8 MIU, EVERY 2D
     Route: 058
     Dates: start: 19980330, end: 20070111
  2. ANTIDEPRESSANTS [Concomitant]
  3. APPETITE STIMULANTS [Concomitant]

REACTIONS (3)
  - DEHYDRATION [None]
  - DELIRIUM [None]
  - DEMENTIA [None]
